FAERS Safety Report 5509039-6 (Version None)
Quarter: 2007Q4

REPORT INFORMATION
  Report Type: 
  Country: None (occurrence: None)
  Receive Date: 20071107
  Receipt Date: 20071031
  Transmission Date: 20080405
  Serious: Yes (Death)
  Sender: FDA-Public Use
  Company Number: JP-BAXTER-2007BH008676

PATIENT
  Age: 58 Year
  Sex: Female

DRUGS (3)
  1. DIANEAL [Suspect]
     Indication: GLOMERULONEPHRITIS CHRONIC
     Route: 033
     Dates: start: 19970610, end: 20070915
  2. EXTRANEAL [Suspect]
     Indication: GLOMERULONEPHRITIS CHRONIC
     Route: 033
     Dates: start: 20031126, end: 20070915
  3. EXTRANEAL [Suspect]
     Route: 033
     Dates: start: 20030904, end: 20031126

REACTIONS (1)
  - CARDIAC FAILURE [None]
